FAERS Safety Report 7397727-9 (Version None)
Quarter: 2011Q2

REPORT INFORMATION
  Report Type: 
  Country: None (occurrence: None)
  Receive Date: 20110401
  Receipt Date: 20110401
  Transmission Date: 20111010
  Serious: No
  Sender: FDA-Public Use
  Company Number: None

PATIENT
  Sex: Female
  Weight: 58.9676 kg

DRUGS (1)
  1. LEVAQUIN [Suspect]
     Indication: URINARY TRACT INFECTION
     Dosage: 1 PILL ONCE DAILY/5 DAYS PO
     Route: 048
     Dates: start: 20101004, end: 20101004

REACTIONS (22)
  - SWELLING FACE [None]
  - WEIGHT DECREASED [None]
  - DIARRHOEA [None]
  - MUSCULAR WEAKNESS [None]
  - ARTHRALGIA [None]
  - TEMPERATURE INTOLERANCE [None]
  - TREMOR [None]
  - CONSTIPATION [None]
  - AMNESIA [None]
  - HEART RATE INCREASED [None]
  - NAUSEA [None]
  - MUSCLE TWITCHING [None]
  - DRY MOUTH [None]
  - DIZZINESS [None]
  - TINNITUS [None]
  - FATIGUE [None]
  - PARAESTHESIA [None]
  - VISION BLURRED [None]
  - ABDOMINAL PAIN [None]
  - BACK PAIN [None]
  - HEADACHE [None]
  - TOXICITY TO VARIOUS AGENTS [None]
